FAERS Safety Report 20047292 (Version 1)
Quarter: 2021Q4

REPORT INFORMATION
  Report Type: Spontaneous
  Country: US (occurrence: US)
  Receive Date: 20211109
  Receipt Date: 20211109
  Transmission Date: 20220303
  Serious: No
  Sender: FDA-Public Use
  Company Number: US-CIPLA LTD.-2021US04012

PATIENT

DRUGS (2)
  1. GABAPENTIN [Suspect]
     Active Substance: GABAPENTIN
     Indication: Trigeminal neuralgia
     Dosage: 300 MILLIGRAM, QD
     Route: 065
     Dates: start: 202105
  2. LAMICTAL [Concomitant]
     Active Substance: LAMOTRIGINE
     Indication: Trigeminal neuralgia
     Dosage: UNK
     Route: 065

REACTIONS (5)
  - Nervousness [Unknown]
  - Anxiety [Unknown]
  - Chills [Unknown]
  - Product use in unapproved indication [Unknown]
  - Off label use [Unknown]

NARRATIVE: CASE EVENT DATE: 20210101
